FAERS Safety Report 10134647 (Version 2)
Quarter: 2014Q2

REPORT INFORMATION
  Report Type: Spontaneous
  Country: US (occurrence: US)
  Receive Date: 20140428
  Receipt Date: 20140609
  Transmission Date: 20141212
  Serious: Yes (Other)
  Sender: FDA-Public Use
  Company Number: US-SA-2014SA054581

PATIENT
  Age: 42 Year
  Sex: Female
  Weight: 61.23 kg

DRUGS (3)
  1. AMBIEN [Suspect]
     Indication: PRODUCT USED FOR UNKNOWN INDICATION
     Dosage: PRN SLEEP QHS
     Route: 065
     Dates: end: 20120623
  2. VENLAFAXINE [Concomitant]
     Indication: DEPRESSION
     Route: 065
  3. ABILIFY [Concomitant]
     Indication: ANXIETY
     Route: 065

REACTIONS (2)
  - Road traffic accident [Recovered/Resolved]
  - Somnambulism [Recovered/Resolved]
